FAERS Safety Report 10518805 (Version 1)
Quarter: 2014Q4

REPORT INFORMATION
  Report Type: Spontaneous
  Country: FR (occurrence: FR)
  Receive Date: 20141015
  Receipt Date: 20141015
  Transmission Date: 20150528
  Serious: Yes (Other)
  Sender: FDA-Public Use
  Company Number: FR-BAYER-2014-149819

PATIENT
  Age: 24 Year
  Sex: Female

DRUGS (1)
  1. MIRENA [Suspect]
     Active Substance: LEVONORGESTREL
     Dosage: 20 MCG/24HR, CONT
     Route: 015

REACTIONS (7)
  - Device expulsion [None]
  - Cyst rupture [None]
  - Inflammation [None]
  - Endometriosis [None]
  - Appendicitis [None]
  - Pyrexia [None]
  - Abdominal pain [None]
